FAERS Safety Report 17520034 (Version 1)
Quarter: 2020Q1

REPORT INFORMATION
  Report Type: Spontaneous
  Country: US (occurrence: US)
  Receive Date: 20200307
  Receipt Date: 20200307
  Transmission Date: 20200409
  Serious: Yes (Hospitalization)
  Sender: FDA-Public Use
  Company Number: None

PATIENT
  Age: 89 Year
  Sex: Female
  Weight: 90 kg

DRUGS (9)
  1. METFORMIN [Concomitant]
     Active Substance: METFORMIN HYDROCHLORIDE
  2. RAMPRIL [Concomitant]
     Active Substance: RAMIPRIL
  3. ASPIRIN 81MG [Concomitant]
     Active Substance: ASPIRIN
  4. FURESOMIDE [Concomitant]
  5. NOVOLIN NOS [Concomitant]
     Active Substance: INSULIN HUMAN
  6. VITAMIN D [Concomitant]
     Active Substance: VITAMIN D NOS
  7. SYSTANE (HYPROMELLOSE 2910 (4000 MPA.S)) [Concomitant]
     Active Substance: HYPROMELLOSE 2910 (4000 MPA.S)
  8. AVASTIN [Suspect]
     Active Substance: BEVACIZUMAB
     Indication: AGE-RELATED MACULAR DEGENERATION
     Dates: start: 20190225, end: 20190225
  9. LEVETHYROXIN [Concomitant]

REACTIONS (2)
  - Near death experience [None]
  - Hyperhidrosis [None]

NARRATIVE: CASE EVENT DATE: 20190225
